FAERS Safety Report 9853607 (Version 2)
Quarter: 2014Q1

REPORT INFORMATION
  Report Type: Spontaneous
  Country: JP (occurrence: JP)
  Receive Date: 20140129
  Receipt Date: 20140129
  Transmission Date: 20141002
  Serious: Yes (Other)
  Sender: FDA-Public Use
  Company Number: PHHY2014JP005775

PATIENT
  Sex: Male

DRUGS (5)
  1. CICLOSPORIN [Suspect]
     Indication: BONE MARROW TRANSPLANT
     Route: 048
  2. MYCOPHENOLATE MOFETIL [Suspect]
  3. PREDNISOLONE [Suspect]
     Dosage: 2 MG/KG, UNK
  4. METHOTREXATE [Concomitant]
     Indication: PROPHYLAXIS AGAINST GRAFT VERSUS HOST DISEASE
  5. BUDESONIDE [Concomitant]
     Indication: GRAFT VERSUS HOST DISEASE
     Route: 048

REACTIONS (6)
  - Renal impairment [Unknown]
  - Cytomegalovirus infection [Unknown]
  - Graft versus host disease [Unknown]
  - Graft versus host disease in skin [Unknown]
  - Graft versus host disease in intestine [Unknown]
  - Drug ineffective [Unknown]
